FAERS Safety Report 9773527 (Version 2)
Quarter: 2013Q4

REPORT INFORMATION
  Report Type: Spontaneous
  Country: FI (occurrence: FI)
  Receive Date: 20131219
  Receipt Date: 20131219
  Transmission Date: 20140711
  Serious: Yes (Disabling)
  Sender: FDA-Public Use
  Company Number: ALCN2013FI005898

PATIENT
  Age: 55 Year
  Sex: Female

DRUGS (4)
  1. CIPROFLOXACIN\HYDROCORTISONE [Suspect]
     Indication: EAR PAIN
     Dosage: 6 DRP, QD
     Route: 001
     Dates: start: 20131118, end: 20131119
  2. CIPROFLOXACIN\HYDROCORTISONE [Suspect]
     Indication: OTORRHOEA
  3. CIPROFLOXACIN\HYDROCORTISONE [Suspect]
     Indication: EAR INFECTION
  4. CIPROFLOXACIN\HYDROCORTISONE [Suspect]
     Indication: OFF LABEL USE

REACTIONS (6)
  - Hypoacusis [Not Recovered/Not Resolved]
  - Otorrhoea [Not Recovered/Not Resolved]
  - Ear pain [Not Recovered/Not Resolved]
  - Hypoaesthesia [Not Recovered/Not Resolved]
  - Burning sensation [Unknown]
  - Condition aggravated [Not Recovered/Not Resolved]
